FAERS Safety Report 6489040-9 (Version None)
Quarter: 2009Q4

REPORT INFORMATION
  Report Type: 
  Country: None (occurrence: None)
  Receive Date: 20091210
  Receipt Date: 20090919
  Transmission Date: 20100525
  Serious: No
  Sender: FDA-Public Use
  Company Number: US-AMGEN-KDL365538

PATIENT
  Sex: Male

DRUGS (1)
  1. ENBREL [Suspect]
     Indication: PSORIASIS
     Route: 058
     Dates: start: 20060401

REACTIONS (5)
  - BACTERIAL INFECTION [None]
  - BLOOD IRON INCREASED [None]
  - LOCALISED INFECTION [None]
  - PSORIASIS [None]
  - WHITE BLOOD CELL COUNT DECREASED [None]
